FAERS Safety Report 4686760-3 (Version None)
Quarter: 2005Q2

REPORT INFORMATION
  Report Type: 
  Country: None (occurrence: None)
  Receive Date: 20050608
  Receipt Date: 20050531
  Transmission Date: 20051028
  Serious: Yes (Disabling)
  Sender: FDA-Public Use
  Company Number: 2005079353

PATIENT
  Age: 75 Year
  Sex: Male

DRUGS (5)
  1. ZOLOFT [Suspect]
     Indication: DEPRESSION
     Dosage: 150 MG (150 MG), ORAL
     Route: 048
     Dates: start: 20041206
  2. LEVODOPA-CARBIDOPA (CARBIDOPA, LEVODOPA) [Concomitant]
  3. PERGOLIDE MESYLATE [Concomitant]
  4. PRAVASTATIN [Concomitant]
  5. LORMETAZEPAM (LORMETAZEPAM) [Concomitant]

REACTIONS (3)
  - CONDITION AGGRAVATED [None]
  - DIFFICULTY IN WALKING [None]
  - PARKINSONISM [None]
